FAERS Safety Report 5207619-9 (Version None)
Quarter: 2007Q1

REPORT INFORMATION
  Report Type: 
  Country: None (occurrence: None)
  Receive Date: 20070112
  Receipt Date: 20070102
  Transmission Date: 20070707
  Serious: Yes (Hospitalization)
  Sender: FDA-Public Use
  Company Number: DE-PFIZER INC-2005156558

PATIENT
  Age: 75 Year
  Sex: Female

DRUGS (11)
  1. ATORVASTATIN CALCIUM [Interacting]
     Indication: ILL-DEFINED DISORDER
     Dosage: DAILY DOSE:10MG
     Route: 048
  2. PANTOZOL [Interacting]
     Indication: ILL-DEFINED DISORDER
     Dosage: DAILY DOSE:40MG
     Route: 048
  3. MIRTAZAPINE [Interacting]
     Indication: DEPRESSION
     Dosage: DAILY DOSE:30MG
     Route: 048
     Dates: start: 20050309, end: 20050509
  4. PLAVIX [Interacting]
     Indication: ILL-DEFINED DISORDER
     Dosage: DAILY DOSE:75MG
     Route: 048
  5. XANEF [Suspect]
     Indication: HYPERTENSION
     Dosage: DAILY DOSE:15MG
     Route: 048
  6. XANEF [Suspect]
     Indication: CARDIAC FAILURE
  7. DYTIDE H [Suspect]
     Indication: ILL-DEFINED DISORDER
     Dosage: DAILY DOSE:25MG
     Route: 048
  8. TAVOR [Concomitant]
     Route: 048
     Dates: start: 20050421, end: 20050501
  9. ZOLPIDEM TARTRATE [Concomitant]
     Route: 048
  10. SOLIAN [Concomitant]
     Route: 048
  11. LEVOTHYROXINE SODIUM [Concomitant]
     Route: 048

REACTIONS (4)
  - DEPRESSION [None]
  - DRUG INTERACTION [None]
  - HYPONATRAEMIA [None]
  - INAPPROPRIATE ANTIDIURETIC HORMONE SECRETION [None]
